FAERS Safety Report 5213749-8 (Version None)
Quarter: 2007Q1

REPORT INFORMATION
  Report Type: 
  Country: None (occurrence: None)
  Receive Date: 20070119
  Receipt Date: 20060927
  Transmission Date: 20070707
  Serious: Yes (Hospitalization, Other)
  Sender: FDA-Public Use
  Company Number: US-PFIZER INC-2007001003

PATIENT
  Sex: Female
  Weight: 82.6 kg

DRUGS (10)
  1. BEXTRA [Suspect]
     Indication: ARTHRITIS
  2. ATACAND [Concomitant]
  3. HYDROCHLOROTHIAZIDE [Concomitant]
  4. ATENOLOL [Concomitant]
  5. QUINIDINE SULFATE [Concomitant]
  6. ISOXSUPRINE [Concomitant]
  7. FOSAMAX [Concomitant]
  8. CATAPRES [Concomitant]
  9. TAMOXIFEN CITRATE [Concomitant]
  10. AVANDIA [Concomitant]

REACTIONS (16)
  - ACUTE MYOCARDIAL INFARCTION [None]
  - ACUTE RESPIRATORY FAILURE [None]
  - ANAPHYLACTIC REACTION [None]
  - ANAPHYLACTIC SHOCK [None]
  - ATRIAL FIBRILLATION [None]
  - CORONARY ARTERY DISEASE [None]
  - DRUG HYPERSENSITIVITY [None]
  - MYOCARDIAL INFARCTION [None]
  - PHARYNGEAL OEDEMA [None]
  - PURPURA [None]
  - PYREXIA [None]
  - RASH [None]
  - SKIN EXFOLIATION [None]
  - SKIN LESION [None]
  - SWELLING FACE [None]
  - SWOLLEN TONGUE [None]
